FAERS Safety Report 5657263-4 (Version None)
Quarter: 2008Q1

REPORT INFORMATION
  Report Type: 
  Country: None (occurrence: None)
  Receive Date: 20080310
  Receipt Date: 20080306
  Transmission Date: 20080703
  Serious: Yes (Hospitalization)
  Sender: FDA-Public Use
  Company Number: JP-ASTRAZENECA-2005AP03549

PATIENT
  Age: 24471 Day
  Sex: Female

DRUGS (2)
  1. ARIMIDEX [Suspect]
     Indication: BREAST CANCER STAGE I
     Route: 048
     Dates: start: 20041007, end: 20050324
  2. RADIATION THERAPY [Suspect]
     Dosage: 50 GY
     Dates: start: 20040809, end: 20040917

REACTIONS (1)
  - CRYPTOGENIC ORGANISING PNEUMONIA [None]
